FAERS Safety Report 7328168-8 (Version None)
Quarter: 2011Q1

REPORT INFORMATION
  Report Type: 
  Country: None (occurrence: None)
  Receive Date: 20110303
  Receipt Date: 20110223
  Transmission Date: 20110831
  Serious: Yes (Other)
  Sender: FDA-Public Use
  Company Number: JP-ELI_LILLY_AND_COMPANY-JP201102006609

PATIENT
  Age: 75 Year
  Sex: Female

DRUGS (5)
  1. LIPITOR [Concomitant]
     Indication: DYSLIPIDAEMIA
     Dosage: 5 MG, DAILY (1/D)
     Route: 048
     Dates: start: 20100616
  2. DEPAS [Concomitant]
     Indication: ANXIETY
     Dosage: 1 MG, DAILY (1/D)
     Route: 048
     Dates: start: 20090901
  3. METHOTREXAT [Concomitant]
     Indication: RHEUMATOID ARTHRITIS
     Dosage: 6 MG, WEEKLY (1/W)
     Route: 048
     Dates: start: 20010501
  4. ENBREL [Concomitant]
     Indication: RHEUMATOID ARTHRITIS
     Dosage: 25 MG, WEEKLY (1/W)
     Route: 058
     Dates: start: 20080304
  5. FORTEO [Suspect]
     Indication: OSTEOPOROSIS
     Dosage: 20 UG, DAILY (1/D)
     Route: 058
     Dates: start: 20101208, end: 20110131

REACTIONS (6)
  - DEPRESSIVE SYMPTOM [None]
  - BLOOD PRESSURE DECREASED [None]
  - DYSPNOEA [None]
  - DIZZINESS [None]
  - ARTHRALGIA [None]
  - HEADACHE [None]
